FAERS Safety Report 16534720 (Version 1)
Quarter: 2019Q3

REPORT INFORMATION
  Report Type: Spontaneous
  Country: DK (occurrence: DK)
  Receive Date: 20190705
  Receipt Date: 20190705
  Transmission Date: 20191004
  Serious: Yes (Hospitalization, Other)
  Sender: FDA-Public Use
  Company Number: DK-AMGEN-DNKSP2019105044

PATIENT
  Age: 70 Year
  Sex: Female

DRUGS (11)
  1. CALCIUM D3 [Concomitant]
     Active Substance: CALCIUM\CHOLECALCIFEROL
     Indication: MINERAL SUPPLEMENTATION
     Dosage: 2 UNK, QD
     Route: 048
     Dates: start: 20150417
  2. PARACETAMOL [Concomitant]
     Active Substance: ACETAMINOPHEN
     Indication: PAIN
     Dosage: 3000 MILLIGRAM, QD,500 MILLIGRAM
     Route: 048
     Dates: start: 20160514
  3. FASLODEX [Concomitant]
     Active Substance: FULVESTRANT
     Indication: BREAST CANCER METASTATIC
     Dosage: 10 MILLILITER, 250 MILLIGRAM/ 5 MILLILTRE
     Dates: start: 20160711
  4. CANESTEN [Concomitant]
     Active Substance: CLOTRIMAZOLE
     Indication: FUNGAL INFECTION
     Dosage: 2 UNK, QD, 1%
     Route: 058
     Dates: start: 20161024
  5. PERJETA [Concomitant]
     Active Substance: PERTUZUMAB
     Indication: BREAST CANCER METASTATIC
     Dosage: 420 MILLIGRAM
     Dates: start: 20160819, end: 20190611
  6. XGEVA [Suspect]
     Active Substance: DENOSUMAB
     Indication: BREAST CANCER METASTATIC
     Dosage: 120 MILLIGRAM, Q4WK
     Route: 058
     Dates: start: 20141024, end: 20180414
  7. CETIRIZINE [Concomitant]
     Active Substance: CETIRIZINE HYDROCHLORIDE
     Indication: PRURITUS
     Dosage: 10 MILLIGRAM, QD
     Route: 048
     Dates: start: 20181102
  8. IBUPROFEN. [Concomitant]
     Active Substance: IBUPROFEN
     Indication: PAIN
     Dosage: 1200 MILLIGRAM, QD, 400 MILLIGRAM
     Route: 048
  9. VISCOTEARS [Concomitant]
     Active Substance: CARBOMER
     Indication: LACRIMATION DECREASED
     Dosage: 4 UNK, QD,2 MILLIGRAM/GRAM
     Route: 050
     Dates: start: 20160514, end: 20190611
  10. CODEINE [Concomitant]
     Active Substance: CODEINE
     Indication: ANTITUSSIVE THERAPY
     Dosage: 15 MILLILITER, QD, 8 MILLIGRAM/MILLILITRE
     Route: 048
     Dates: start: 20180518
  11. TRASTUZUMAB. [Concomitant]
     Active Substance: TRASTUZUMAB
     Indication: BREAST CANCER METASTATIC
     Dosage: 462 MILLIGRAM
     Dates: start: 20181015

REACTIONS (6)
  - Sequestrectomy [Recovered/Resolved]
  - Mouth swelling [Unknown]
  - Pain in jaw [Unknown]
  - Oral mucosal erythema [Unknown]
  - Osteonecrosis of jaw [Recovered/Resolved]
  - Off label use [Unknown]

NARRATIVE: CASE EVENT DATE: 2018
